FAERS Safety Report 5971903-1 (Version None)
Quarter: 2008Q4

REPORT INFORMATION
  Report Type: 
  Country: None (occurrence: None)
  Receive Date: 20081121
  Receipt Date: 20081110
  Transmission Date: 20090506
  Serious: Yes (Other)
  Sender: FDA-Public Use
  Company Number: DSU-2008-01967

PATIENT
  Age: 34 Year
  Sex: Female

DRUGS (2)
  1. OLMESARTAN MEDOXOMIL AND HYDROCHLOROTHIZIDE [Suspect]
     Indication: HYPERTENSION
     Dosage: 20/12.5 MG (QD), PER ORAL
     Route: 048
     Dates: start: 20071101, end: 20080501
  2. FEMIANE (ETHINYLESTRADIOL, GESTODENE) (ETHINYLESTRADIOL, GESTODENE) [Concomitant]

REACTIONS (4)
  - DEHYDRATION [None]
  - HEAD INJURY [None]
  - SYNCOPE [None]
  - WOUND [None]
